FAERS Safety Report 7818986-1 (Version None)
Quarter: 2011Q4

REPORT INFORMATION
  Report Type: 
  Country: None (occurrence: None)
  Receive Date: 20111012
  Receipt Date: 20110930
  Transmission Date: 20120403
  Serious: Yes (Other)
  Sender: FDA-Public Use
  Company Number: AUR-APL-2010-00070

PATIENT
  Age: 63 Year
  Sex: Male
  Weight: 105 kg

DRUGS (8)
  1. PRINZIDE [Suspect]
     Indication: HYPERTENSION
  2. PIPERACILLIN AND TAZOBACTAM [Concomitant]
  3. ACETAMINOPHEN [Suspect]
     Indication: PRODUCT USED FOR UNKNOWN INDICATION
     Dosage: (500 MG)
  4. ESOMEPRAZOLE [Concomitant]
  5. METFORMIN HCL [Suspect]
     Indication: TYPE 2 DIABETES MELLITUS
     Dosage: (850 MG)
  6. CISPLATIN [Suspect]
     Indication: URETHRAL CANCER
  7. LINEZOLID [Concomitant]
  8. GEMCITABINE [Concomitant]

REACTIONS (5)
  - DRUG INTERACTION [None]
  - URINARY TRACT INFECTION STAPHYLOCOCCAL [None]
  - BLOOD LACTATE DEHYDROGENASE INCREASED [None]
  - GAMMA-GLUTAMYLTRANSFERASE INCREASED [None]
  - RENAL IMPAIRMENT [None]
